FAERS Safety Report 22636577 (Version 1)
Quarter: 2023Q2

REPORT INFORMATION
  Report Type: Spontaneous
  Country: US (occurrence: US)
  Receive Date: 20230623
  Receipt Date: 20230623
  Transmission Date: 20230721
  Serious: No
  Sender: FDA-Public Use
  Company Number: US-PFIZER INC-PV202200055274

PATIENT
  Age: 74 Year
  Sex: Female

DRUGS (1)
  1. TIKOSYN [Suspect]
     Active Substance: DOFETILIDE
     Dosage: 375 UG, 2X/DAY (125 MCG, TAKE 3 TABS EVERY 12 HOURS)
     Route: 048

REACTIONS (2)
  - Off label use [Unknown]
  - Pain [Unknown]
